FAERS Safety Report 8583633 (Version 2)
Quarter: 2016Q4

REPORT INFORMATION
  Report Type: Spontaneous
  Country: IT (occurrence: IT)
  Receive Date: 20120529
  Receipt Date: 20161214
  Transmission Date: 20170207
  Serious: Yes (Other)
  Sender: FDA-Public Use
  Company Number: IT-JNJFOC-20120519489

PATIENT
  Sex: Female

DRUGS (3)
  1. DEXAMETHASONE. [Concomitant]
     Active Substance: DEXAMETHASONE
     Indication: PREMEDICATION
     Route: 065
  2. YONDELIS [Suspect]
     Active Substance: TRABECTEDIN
     Indication: OVARIAN CANCER
     Dosage: OVER 3 HOURS FOR 3 WEEKS
     Route: 042
  3. DOXORUBICIN HYDROCHLORIDE. [Suspect]
     Active Substance: DOXORUBICIN HYDROCHLORIDE
     Indication: OVARIAN CANCER
     Dosage: ON DAYS 1, 8 AND 15 EVERY 28 DAYS
     Route: 042

REACTIONS (7)
  - Aspartate aminotransferase increased [Unknown]
  - Nausea [Unknown]
  - Neutropenia [Unknown]
  - Thrombocytopenia [Unknown]
  - Vomiting [Unknown]
  - Fatigue [Unknown]
  - Alanine aminotransferase increased [Unknown]
